FAERS Safety Report 22803774 (Version 6)
Quarter: 2023Q4

REPORT INFORMATION
  Report Type: Report from Study
  Country: US (occurrence: US)
  Receive Date: 20230809
  Receipt Date: 20231208
  Transmission Date: 20240110
  Serious: No
  Sender: FDA-Public Use
  Company Number: US-002147023-NVSC2023US173721

PATIENT
  Sex: Female

DRUGS (2)
  1. KESIMPTA [Suspect]
     Active Substance: OFATUMUMAB
     Indication: Product used for unknown indication
     Dosage: UNK
     Route: 065
  2. KESIMPTA [Suspect]
     Active Substance: OFATUMUMAB
     Dosage: UNK, EVERY 28 DAYS
     Route: 065

REACTIONS (6)
  - COVID-19 [Recovering/Resolving]
  - Ear infection [Recovering/Resolving]
  - Nasopharyngitis [Unknown]
  - Aphonia [Unknown]
  - Sinusitis [Recovering/Resolving]
  - Product prescribing error [Unknown]
